FAERS Safety Report 9307518 (Version 5)
Quarter: 2014Q4

REPORT INFORMATION
  Report Type: Spontaneous
  Country: US (occurrence: US)
  Receive Date: 20130524
  Receipt Date: 20141029
  Transmission Date: 20150529
  Serious: Yes (Hospitalization)
  Sender: FDA-Public Use
  Company Number: US-BAYER-2013-062155

PATIENT
  Age: 24 Year
  Sex: Female
  Weight: 54.42 kg

DRUGS (11)
  1. DOXYCYCLINE. [Concomitant]
     Active Substance: DOXYCYCLINE
     Indication: PAIN
  2. MOTRIN [Concomitant]
     Active Substance: IBUPROFEN
  3. FLAGYL [Concomitant]
     Active Substance: METRONIDAZOLE\METRONIDAZOLE HYDROCHLORIDE
  4. METRONIDAZOLE. [Concomitant]
     Active Substance: METRONIDAZOLE
     Indication: BACTERIAL VAGINOSIS
  5. FOLIC ACID. [Concomitant]
     Active Substance: FOLIC ACID
  6. VICODIN [Concomitant]
     Active Substance: ACETAMINOPHEN\HYDROCODONE BITARTRATE
  7. IBUPROFEN [IBUPROFEN] [Concomitant]
     Active Substance: IBUPROFEN
     Indication: PAIN
     Dosage: UNK
     Dates: start: 20090818
  8. LEVAQUIN [Concomitant]
     Active Substance: LEVOFLOXACIN
  9. KEFLEX [Concomitant]
     Active Substance: CEPHALEXIN
  10. MIRENA [Suspect]
     Active Substance: LEVONORGESTREL
     Indication: CONTRACEPTION
     Dosage: 20 MCG/24HR, CONT
     Route: 015
     Dates: start: 20090817, end: 20110520
  11. ORTHO EVRA [Concomitant]
     Active Substance: ETHINYL ESTRADIOL\NORELGESTROMIN
     Indication: CONTRACEPTION
     Dosage: UNK
     Dates: start: 2011

REACTIONS (12)
  - Pyrexia [None]
  - Pain [None]
  - Device difficult to use [None]
  - Drug ineffective [None]
  - Tubo-ovarian abscess [None]
  - Pregnancy with contraceptive device [Recovered/Resolved]
  - Abdominal pain [None]
  - Injury [None]
  - Pelvic adhesions [None]
  - Device issue [None]
  - Emotional distress [None]
  - Uterine perforation [None]

NARRATIVE: CASE EVENT DATE: 20101020
